FAERS Safety Report 8720838 (Version 4)
Quarter: 2016Q3

REPORT INFORMATION
  Report Type: Report from Study
  Country: US (occurrence: US)
  Receive Date: 20120813
  Receipt Date: 20160801
  Transmission Date: 20161109
  Serious: Yes (Other)
  Sender: FDA-Public Use
  Company Number: US-ROCHE-769761

PATIENT
  Age: 66 Year
  Sex: Female
  Weight: 65.3 kg

DRUGS (8)
  1. VISMODEGIB [Suspect]
     Active Substance: VISMODEGIB
     Route: 048
     Dates: start: 20110302, end: 20110401
  2. CISPLATIN. [Suspect]
     Active Substance: CISPLATIN
     Dosage: 75 MG/M2, Q21D?LAST ADMINISTERED DATE: 02/MAR/2011
     Route: 042
     Dates: end: 20110407
  3. ETOPOSIDE. [Suspect]
     Active Substance: ETOPOSIDE
     Dosage: 100 MG/M2, QDX3D/21DC?LAST ADMINISTERED DATE: 04/MAR/2011
     Route: 042
     Dates: end: 20110407
  4. VISMODEGIB [Suspect]
     Active Substance: VISMODEGIB
     Indication: SMALL CELL LUNG CANCER
     Route: 048
  5. CISPLATIN. [Suspect]
     Active Substance: CISPLATIN
     Indication: SMALL CELL LUNG CANCER
     Dosage: 75 MG/M2, Q21D?TOTAL DOSE IN FOURTH COURSE: 130 MG
     Route: 042
     Dates: start: 20101210, end: 20101229
  6. VISMODEGIB [Suspect]
     Active Substance: VISMODEGIB
     Route: 048
  7. VISMODEGIB [Suspect]
     Active Substance: VISMODEGIB
     Route: 048
  8. ETOPOSIDE. [Suspect]
     Active Substance: ETOPOSIDE
     Indication: SMALL CELL LUNG CANCER
     Dosage: 100 MG/M2, QDX3D/21DC?TOTAL DOSE ON FOURTH COURSE: 525 MG
     Route: 042
     Dates: start: 20101210, end: 20101231

REACTIONS (3)
  - Weight decreased [Not Recovered/Not Resolved]
  - Anaemia [Unknown]
  - Hyponatraemia [Unknown]

NARRATIVE: CASE EVENT DATE: 20101229
